FAERS Safety Report 4835341-7 (Version None)
Quarter: 2005Q4

REPORT INFORMATION
  Report Type: 
  Country: None (occurrence: None)
  Receive Date: 20051114
  Receipt Date: 20051004
  Transmission Date: 20060501
  Serious: Yes (Hospitalization)
  Sender: FDA-Public Use
  Company Number: 2005SP003343

PATIENT
  Age: 76 Year
  Sex: Female
  Weight: 106.5953 kg

DRUGS (4)
  1. XOPENEX [Suspect]
     Dosage: 1.25 MG;QID; INHALATION
     Route: 055
     Dates: start: 20050101
  2. THEOPHYLLINE [Concomitant]
  3. TOPROL-XL [Concomitant]
  4. ADVAIR DISKUS 100/50 [Concomitant]

REACTIONS (2)
  - ALOPECIA [None]
  - COLLAPSE OF LUNG [None]
